FAERS Safety Report 12741675 (Version 1)
Quarter: 2016Q3

REPORT INFORMATION
  Report Type: Spontaneous
  Country: US (occurrence: US)
  Receive Date: 20160913
  Receipt Date: 20160913
  Transmission Date: 20161109
  Serious: Yes (Hospitalization, Disabling, Other)
  Sender: FDA-Public Use
  Company Number: None

PATIENT
  Age: 44 Year
  Sex: Female
  Weight: 64.8 kg

DRUGS (3)
  1. ATIVAN [Concomitant]
     Active Substance: LORAZEPAM
  2. TYLENOL [Concomitant]
     Active Substance: ACETAMINOPHEN
  3. BOTOX [Suspect]
     Active Substance: ONABOTULINUMTOXINA
     Indication: SKIN WRINKLING
     Route: 058
     Dates: start: 20160723

REACTIONS (27)
  - Impaired work ability [None]
  - Angina pectoris [None]
  - Feeling abnormal [None]
  - Visual impairment [None]
  - Vision blurred [None]
  - Diarrhoea [None]
  - Headache [None]
  - Depressed mood [None]
  - Feeling drunk [None]
  - Palpitations [None]
  - Dyspnoea [None]
  - Dysarthria [None]
  - Hot flush [None]
  - Sluggishness [None]
  - Parotid gland enlargement [None]
  - Malaise [None]
  - Muscular weakness [None]
  - Head discomfort [None]
  - Anxiety [None]
  - Speech disorder [None]
  - Dysphemia [None]
  - Feeling cold [None]
  - Paranasal sinus discomfort [None]
  - Thinking abnormal [None]
  - Dysphonia [None]
  - Weight decreased [None]
  - Hypoaesthesia oral [None]

NARRATIVE: CASE EVENT DATE: 20160723
